FAERS Safety Report 8077301-1 (Version None)
Quarter: 2012Q1

REPORT INFORMATION
  Report Type: 
  Country: None (occurrence: None)
  Receive Date: 20120127
  Receipt Date: 20120118
  Transmission Date: 20120608
  Serious: Yes (Hospitalization)
  Sender: FDA-Public Use
  Company Number: US-JNJFOC-20111207874

PATIENT
  Sex: Male
  Weight: 60.7 kg

DRUGS (2)
  1. REMICADE [Suspect]
     Indication: INFLAMMATORY BOWEL DISEASE
     Route: 042
     Dates: start: 20100108
  2. VITAMIN B-12 [Concomitant]
     Route: 050

REACTIONS (1)
  - GASTRITIS [None]
